FAERS Safety Report 14569182 (Version 8)
Quarter: 2019Q4

REPORT INFORMATION
  Report Type: Report from Study
  Country: US (occurrence: US)
  Receive Date: 20180223
  Receipt Date: 20191029
  Transmission Date: 20200122
  Serious: Yes (Other)
  Sender: FDA-Public Use
  Company Number: PHEH2018US007411

PATIENT
  Sex: Female
  Weight: 58.05 kg

DRUGS (2)
  1. ENTRESTO [Suspect]
     Active Substance: SACUBITRIL\VALSARTAN
     Indication: CARDIAC FAILURE CHRONIC
  2. ENTRESTO [Suspect]
     Active Substance: SACUBITRIL\VALSARTAN
     Indication: HYPERTENSION
     Dosage: 1 DF (24/26 MG)
     Route: 048
     Dates: start: 20170913

REACTIONS (15)
  - Palpitations [Unknown]
  - Chest pain [Unknown]
  - Hypertension [Unknown]
  - Atrial fibrillation [Unknown]
  - Cardiac disorder [Unknown]
  - Malaise [Unknown]
  - Type 2 diabetes mellitus [Unknown]
  - Cardiac failure congestive [Unknown]
  - Chest discomfort [Unknown]
  - Dyspnoea [Unknown]
  - Coronary artery disease [Unknown]
  - Heart rate increased [Unknown]
  - Insomnia [Unknown]
  - Pain [Unknown]
  - Hyperlipidaemia [Unknown]
